FAERS Safety Report 6988667-5 (Version None)
Quarter: 2010Q3

REPORT INFORMATION
  Report Type: 
  Country: None (occurrence: None)
  Receive Date: 20100916
  Receipt Date: 20100907
  Transmission Date: 20110219
  Serious: Yes (Other)
  Sender: FDA-Public Use
  Company Number: TZ-B.I. PHARMACEUTICALS,INC./RIDGEFIELD-2010-BP-10125BP

PATIENT

DRUGS (1)
  1. NEVIRAPINE [Suspect]
     Indication: PROPHYLAXIS AGAINST HIV INFECTION
     Route: 048

REACTIONS (1)
  - MALNUTRITION [None]
